FAERS Safety Report 6609086-7 (Version None)
Quarter: 2010Q1

REPORT INFORMATION
  Report Type: 
  Country: None (occurrence: None)
  Receive Date: 20100225
  Receipt Date: 20100225
  Transmission Date: 20100710
  Serious: Yes (Hospitalization)
  Sender: FDA-Public Use
  Company Number: None

PATIENT
  Sex: Female
  Weight: 67.9 kg

DRUGS (6)
  1. CYCLOPHOSPHAMIDE [Suspect]
     Dosage: 1320 MG
  2. DOXORUBICIN HCL [Suspect]
     Dosage: 68 MG
  3. ETOPOSIDE [Suspect]
  4. PREDNISONE [Suspect]
     Dosage: 1050 MG
  5. RITUXIMAB (MOAB C2B8 ANTI CD20, CHIMERIC) [Suspect]
     Dosage: 649MG
  6. VINCRISTINE SULFATE [Suspect]
     Dosage: 2.76 MG

REACTIONS (9)
  - ARTHRALGIA [None]
  - DISEASE PROGRESSION [None]
  - DIZZINESS [None]
  - FATIGUE [None]
  - HAEMOGLOBIN DECREASED [None]
  - HYPOPHAGIA [None]
  - MUCOSAL INFLAMMATION [None]
  - PLATELET COUNT DECREASED [None]
  - WHITE BLOOD CELL COUNT DECREASED [None]
